FAERS Safety Report 14839491 (Version 1)
Quarter: 2018Q2

REPORT INFORMATION
  Report Type: Spontaneous
  Country: CA (occurrence: CA)
  Receive Date: 20180502
  Receipt Date: 20180502
  Transmission Date: 20180711
  Serious: Yes (Other)
  Sender: FDA-Public Use
  Company Number: CA-TEVA-2018-CA-886741

PATIENT
  Age: 22 Year
  Sex: Female
  Weight: 59.02 kg

DRUGS (3)
  1. PRAZOSIN. [Suspect]
     Active Substance: PRAZOSIN
     Indication: NIGHTMARE
     Route: 048
  2. ABILIFY [Concomitant]
     Active Substance: ARIPIPRAZOLE
  3. CANNABIS [Concomitant]
     Active Substance: CANNABIS SATIVA SUBSP. INDICA TOP

REACTIONS (4)
  - Thrombosis [Recovered/Resolved]
  - Vaginal haemorrhage [Recovered/Resolved]
  - Menorrhagia [Recovered/Resolved]
  - Metrorrhagia [Recovered/Resolved]
